FAERS Safety Report 9275874 (Version 1)
Quarter: 2013Q2

REPORT INFORMATION
  Report Type: Spontaneous
  Country: US (occurrence: US)
  Receive Date: 20130507
  Receipt Date: 20130507
  Transmission Date: 20140414
  Serious: Yes (Hospitalization)
  Sender: FDA-Public Use
  Company Number: US-JNJFOC-20130415447

PATIENT
  Age: 25 Year
  Sex: Male

DRUGS (10)
  1. TYLENOL [Suspect]
     Route: 065
  2. TYLENOL [Suspect]
     Indication: KIDNEY INFECTION
     Route: 065
  3. SEROQUEL [Concomitant]
     Route: 048
  4. OMEPRAZOLE [Concomitant]
     Route: 048
  5. PRISTIQ [Concomitant]
     Dosage: DOSE WAS INCREASED WHILE THE PATIENT WAS HOSPITALIZED
     Route: 048
  6. PRISTIQ [Concomitant]
     Route: 048
  7. INVEGA [Concomitant]
     Dosage: DOSE WAS DECREASED WHILE THE PATIENT WAS HOSPITALIZED
     Route: 048
  8. INVEGA [Concomitant]
     Route: 048
  9. PRAZOSIN [Concomitant]
     Route: 048
  10. PROVENTIL [Concomitant]
     Route: 055

REACTIONS (4)
  - Overdose [Recovered/Resolved]
  - Suicide attempt [Unknown]
  - Ligament sprain [Unknown]
  - Depression [Unknown]
